FAERS Safety Report 24709462 (Version 1)
Quarter: 2024Q4

REPORT INFORMATION
  Report Type: Spontaneous
  Country: US (occurrence: US)
  Receive Date: 20241209
  Receipt Date: 20241209
  Transmission Date: 20250115
  Serious: No
  Sender: ALEXION PHARMACEUTICALS
  Company Number: US-AstraZeneca-CH-00763287A

PATIENT
  Age: 69 Year

DRUGS (4)
  1. FASLODEX [Suspect]
     Active Substance: FULVESTRANT
     Route: 065
  2. FASLODEX [Suspect]
     Active Substance: FULVESTRANT
     Route: 065
  3. FASLODEX [Suspect]
     Active Substance: FULVESTRANT
     Route: 065
  4. FASLODEX [Suspect]
     Active Substance: FULVESTRANT
     Route: 065

REACTIONS (12)
  - Specialist consultation [Unknown]
  - Abnormal sensation in eye [Unknown]
  - Dyspnoea [Unknown]
  - Nasal dryness [Unknown]
  - Dry mouth [Unknown]
  - Constipation [Unknown]
  - Feeling abnormal [Unknown]
  - Dry eye [Unknown]
  - Injection site pain [Unknown]
  - Dry mouth [Unknown]
  - Skeletal injury [Unknown]
  - No adverse event [Unknown]
